FAERS Safety Report 5701318-2 (Version None)
Quarter: 2008Q2

REPORT INFORMATION
  Report Type: 
  Country: None (occurrence: None)
  Receive Date: 20080410
  Receipt Date: 20080403
  Transmission Date: 20081010
  Serious: Yes (Other)
  Sender: FDA-Public Use
  Company Number: US-ABBOTT-08P-163-0445364-00

PATIENT
  Sex: Female
  Weight: 90.8 kg

DRUGS (2)
  1. HUMIRA [Suspect]
     Indication: ANKYLOSING SPONDYLITIS
     Route: 058
     Dates: start: 20070801, end: 20080214
  2. HUMIRA [Suspect]
     Route: 058
     Dates: start: 20080301

REACTIONS (2)
  - BLOOD TRIGLYCERIDES INCREASED [None]
  - GALLBLADDER DISORDER [None]
